FAERS Safety Report 12063793 (Version 1)
Quarter: 2016Q1

REPORT INFORMATION
  Report Type: Report from Study
  Country: US (occurrence: US)
  Receive Date: 20160210
  Receipt Date: 20160210
  Transmission Date: 20160526
  Serious: No
  Sender: FDA-Public Use
  Company Number: US-ABBVIE-15P-163-1515747-00

PATIENT
  Age: 16 Year
  Sex: Female

DRUGS (2)
  1. HUMIRA [Suspect]
     Active Substance: ADALIMUMAB
     Indication: CROHN^S DISEASE
     Dosage: 4 PENS UNDER THE SKIN DAY 1 (2 WEEKS APART)
     Route: 058
     Dates: start: 20150323, end: 20150323
  2. HUMIRA [Suspect]
     Active Substance: ADALIMUMAB
     Dosage: 2 PENS DAY 15 (2 WEEKS APART)
     Route: 058
     Dates: start: 201504

REACTIONS (1)
  - Acne [Unknown]

NARRATIVE: CASE EVENT DATE: 201504
